FAERS Safety Report 6155230-8 (Version None)
Quarter: 2009Q2

REPORT INFORMATION
  Report Type: 
  Country: None (occurrence: None)
  Receive Date: 20090415
  Receipt Date: 20070629
  Transmission Date: 20091009
  Serious: Yes (Hospitalization, Other)
  Sender: FDA-Public Use
  Company Number: US-ASTRAZENECA-2006UW24670

PATIENT
  Age: 13817 Day
  Sex: Female
  Weight: 104.3 kg

DRUGS (29)
  1. SEROQUEL [Suspect]
     Indication: INSOMNIA
     Dosage: 60-700 MG
     Route: 048
     Dates: start: 20001219
  2. SEROQUEL [Suspect]
     Indication: DEPRESSION
     Dosage: 60-700 MG
     Route: 048
     Dates: start: 20001219
  3. HALDOL [Concomitant]
  4. RISPERDAL [Concomitant]
  5. THORAZINE [Concomitant]
  6. ZYPREXA [Concomitant]
  7. VISTARIL [Concomitant]
  8. ARTHROTEC [Concomitant]
  9. AVANDIA [Concomitant]
  10. SYNTHROID [Concomitant]
  11. WELLBUTRIN [Concomitant]
  12. DEPAKOTE [Concomitant]
  13. PAXIL [Concomitant]
  14. NEURONTIN [Concomitant]
  15. SINGULAIR [Concomitant]
  16. GLUCOPHAGE [Concomitant]
  17. XANAX [Concomitant]
  18. LORTAB [Concomitant]
  19. ALBUTEROL [Concomitant]
  20. COMBIVENT [Concomitant]
  21. ADVAIR HFA [Concomitant]
  22. NOVOLIN R [Concomitant]
  23. PROTONIX [Concomitant]
  24. IBUPROFEN [Concomitant]
  25. LISINOPRIL [Concomitant]
  26. PRILOSEC [Concomitant]
  27. SEREVENT [Concomitant]
  28. FLOVENT [Concomitant]
  29. CYMBALTA [Concomitant]

REACTIONS (40)
  - AFFECTIVE DISORDER [None]
  - AGGRESSION [None]
  - ARTHRALGIA [None]
  - BIPOLAR I DISORDER [None]
  - CHRONIC OBSTRUCTIVE PULMONARY DISEASE [None]
  - CONSTIPATION [None]
  - CONTUSION [None]
  - CONVULSION [None]
  - CRYING [None]
  - DELUSIONAL DISORDER, PERSECUTORY TYPE [None]
  - DIABETES MELLITUS [None]
  - DIABETIC NEUROPATHY [None]
  - EAR PAIN [None]
  - EMPHYSEMA [None]
  - EXCORIATION [None]
  - FLANK PAIN [None]
  - HALLUCINATION, AUDITORY [None]
  - HEART RATE IRREGULAR [None]
  - HEPATITIS C [None]
  - HYPOKALAEMIA [None]
  - HYPOTHYROIDISM [None]
  - INSOMNIA [None]
  - INTENTIONAL SELF-INJURY [None]
  - IRRITABILITY [None]
  - LIMB INJURY [None]
  - MAJOR DEPRESSION [None]
  - MUSCULOSKELETAL CHEST PAIN [None]
  - ONYCHOMYCOSIS [None]
  - OROPHARYNGEAL PAIN [None]
  - PANCREATITIS [None]
  - POLYSUBSTANCE DEPENDENCE [None]
  - RECTAL HAEMORRHAGE [None]
  - REFLUX GASTRITIS [None]
  - RHEUMATOID ARTHRITIS [None]
  - SCHIZOAFFECTIVE DISORDER [None]
  - SKIN LACERATION [None]
  - SUICIDAL IDEATION [None]
  - SYNCOPE [None]
  - TOBACCO ABUSE [None]
  - TYPE 2 DIABETES MELLITUS [None]
